FAERS Safety Report 9298666 (Version 1)
Quarter: 2013Q2

REPORT INFORMATION
  Report Type: Spontaneous
  Country: US (occurrence: US)
  Receive Date: 20130520
  Receipt Date: 20130520
  Transmission Date: 20140414
  Serious: Yes (Hospitalization)
  Sender: FDA-Public Use
  Company Number: US-GLAXOSMITHKLINE-B0892432A

PATIENT
  Age: 57 Year
  Sex: Female

DRUGS (1)
  1. ORLISTAT [Suspect]
     Indication: WEIGHT DECREASED
     Dosage: 60MG PER DAY
     Route: 048

REACTIONS (1)
  - Leukocytoclastic vasculitis [Recovering/Resolving]
